FAERS Safety Report 23883581 (Version 1)
Quarter: 2024Q2

REPORT INFORMATION
  Report Type: Spontaneous
  Country: US (occurrence: None)
  Receive Date: 20240521
  Receipt Date: 20240521
  Transmission Date: 20240716
  Serious: Yes (Hospitalization)
  Sender: FDA-Public Use
  Company Number: None

PATIENT
  Age: 62 Year
  Sex: Male

DRUGS (10)
  1. AMBRISENTAN [Suspect]
     Active Substance: AMBRISENTAN
     Indication: Pulmonary arterial hypertension
     Dosage: 10MG QD ORAL?
     Route: 048
     Dates: start: 20190509
  2. SILDENAFIL [Concomitant]
     Active Substance: SILDENAFIL
  3. FUROSEMIDE [Concomitant]
     Active Substance: FUROSEMIDE
  4. LISINOPRIL [Concomitant]
     Active Substance: LISINOPRIL
  5. ONDANSETRON [Concomitant]
     Active Substance: ONDANSETRON
  6. ATORVASTATIN [Concomitant]
     Active Substance: ATORVASTATIN
  7. METOPROLOL [Concomitant]
     Active Substance: METOPROLOL
  8. ALLOPURINOL [Concomitant]
     Active Substance: ALLOPURINOL
  9. VITAMIN D3 [Concomitant]
     Active Substance: CHOLECALCIFEROL
  10. FLONASE [Concomitant]
     Active Substance: FLUTICASONE PROPIONATE

REACTIONS (3)
  - Acute respiratory failure [None]
  - Hypervolaemia [None]
  - Drug ineffective [None]

NARRATIVE: CASE EVENT DATE: 20240506
